FAERS Safety Report 7146510-8 (Version None)
Quarter: 2010Q4

REPORT INFORMATION
  Report Type: 
  Country: None (occurrence: None)
  Receive Date: 20101208
  Receipt Date: 20101201
  Transmission Date: 20110411
  Serious: Yes (Other)
  Sender: FDA-Public Use
  Company Number: DE-PFIZER INC-2010154668

PATIENT
  Sex: Female

DRUGS (2)
  1. REVATIO [Suspect]
     Dosage: 20 MG, 3X/DAY
  2. PENTAERYTHRITOL TETRANITRATE [Interacting]
     Dosage: 80 MG, 3X/DAY

REACTIONS (2)
  - DRUG INTERACTION [None]
  - HYPOTENSION [None]
